FAERS Safety Report 8511563-9 (Version None)
Quarter: 2012Q3

REPORT INFORMATION
  Report Type: 
  Country: None (occurrence: None)
  Receive Date: 20120716
  Receipt Date: 20120709
  Transmission Date: 20120928
  Serious: Yes (Other)
  Sender: FDA-Public Use
  Company Number: PHHY2012JP060157

PATIENT

DRUGS (1)
  1. RITALIN [Suspect]
     Route: 048

REACTIONS (3)
  - ALCOHOL ABUSE [None]
  - VOMITING [None]
  - ALCOHOLISM [None]
